FAERS Safety Report 7365744-0 (Version None)
Quarter: 2011Q1

REPORT INFORMATION
  Report Type: 
  Country: None (occurrence: None)
  Receive Date: 20110322
  Receipt Date: 20110311
  Transmission Date: 20110831
  Serious: Yes (Other)
  Sender: FDA-Public Use
  Company Number: US-PFIZER INC-2006069826

PATIENT
  Sex: Male

DRUGS (7)
  1. NEURONTIN [Suspect]
     Dosage: 600 MG, 3X/DAY
     Dates: start: 20040105
  2. NEURONTIN [Suspect]
     Dosage: 600 MG, UNK
     Dates: end: 20040427
  3. NEURONTIN [Suspect]
     Dosage: 600 MG, 3X/DAY
     Dates: start: 20030310
  4. NEURONTIN [Suspect]
     Dosage: 600 MG, 3X/DAY
     Dates: start: 20040211
  5. NEURONTIN [Suspect]
     Dosage: 300 MG, 4X/DAY
     Dates: start: 20040304
  6. NEURONTIN [Suspect]
     Dosage: 600 MG, 3X/DAY
     Dates: start: 20040318
  7. NEURONTIN [Suspect]
     Dosage: 300 MG, 3X/DAY
     Dates: start: 20040106

REACTIONS (1)
  - SUICIDE ATTEMPT [None]
